FAERS Safety Report 5632252-4 (Version None)
Quarter: 2008Q1

REPORT INFORMATION
  Report Type: 
  Country: None (occurrence: None)
  Receive Date: 20080220
  Receipt Date: 20080218
  Transmission Date: 20080703
  Serious: Yes (Other)
  Sender: FDA-Public Use
  Company Number: B0505337A

PATIENT
  Age: 20 Year
  Sex: Female
  Weight: 60 kg

DRUGS (3)
  1. PAXIL [Suspect]
     Indication: OBSESSIVE-COMPULSIVE DISORDER
     Route: 048
     Dates: start: 20060603
  2. LEXOTAN [Concomitant]
     Indication: OBSESSIVE-COMPULSIVE DISORDER
     Route: 048
     Dates: start: 20060928, end: 20061205
  3. MENBIT [Concomitant]
     Indication: OBSESSIVE-COMPULSIVE DISORDER
     Dosage: 1.2MG PER DAY
     Route: 048
     Dates: start: 20060603, end: 20060927

REACTIONS (3)
  - FLIGHT OF IDEAS [None]
  - HYPOMANIA [None]
  - LOGORRHOEA [None]
